FAERS Safety Report 24903771 (Version 1)
Quarter: 2025Q1

REPORT INFORMATION
  Report Type: Spontaneous
  Country: PT (occurrence: PT)
  Receive Date: 20250130
  Receipt Date: 20250130
  Transmission Date: 20250409
  Serious: Yes (Hospitalization, Other)
  Sender: AUROBINDO
  Company Number: PT-ORESUND-25OPAJY0005P

PATIENT
  Age: 35 Year
  Sex: Female

DRUGS (2)
  1. PREDNISOLONE [Suspect]
     Active Substance: PREDNISOLONE
     Indication: Rheumatoid arthritis
     Dosage: 2.5 MILLIGRAM, ONCE A DAY (2.5 MG PER DAY)
     Route: 065
  2. METHOTREXATE [Suspect]
     Active Substance: METHOTREXATE
     Indication: Rheumatoid arthritis
     Dosage: 15 MILLIGRAM, EVERY WEEK (15 MG PER WEEK)
     Route: 065

REACTIONS (15)
  - Necrosis [Recovered/Resolved]
  - Polyarthritis [Recovered/Resolved with Sequelae]
  - Joint destruction [Recovered/Resolved]
  - Bone tuberculosis [Recovered/Resolved]
  - Pulmonary toxicity [Unknown]
  - Joint swelling [Recovered/Resolved with Sequelae]
  - Joint range of motion decreased [Recovered/Resolved with Sequelae]
  - Arthritis [Recovered/Resolved]
  - Osteitis [Recovered/Resolved]
  - Synovitis [Recovered/Resolved]
  - Tenosynovitis [Recovered/Resolved]
  - Lymphadenopathy [Recovered/Resolved]
  - Arthralgia [Recovered/Resolved]
  - Biopsy [Unknown]
  - Drainage [Unknown]
